FAERS Safety Report 8272640-3 (Version None)
Quarter: 2012Q2

REPORT INFORMATION
  Report Type: 
  Country: None (occurrence: None)
  Receive Date: 20120410
  Receipt Date: 20120328
  Transmission Date: 20120825
  Serious: Yes (Hospitalization, Other)
  Sender: FDA-Public Use
  Company Number: US-ELI_LILLY_AND_COMPANY-US201203008979

PATIENT
  Sex: Male

DRUGS (5)
  1. HUMULIN N [Suspect]
     Indication: TYPE 2 DIABETES MELLITUS
     Dosage: 36 U, EACH MORNING
  2. HUMULIN R [Suspect]
     Dosage: UNK, BID
     Route: 065
  3. HUMULIN N [Suspect]
     Dosage: 36 U, EACH MORNING
  4. HUMULIN R [Suspect]
     Indication: TYPE 2 DIABETES MELLITUS
     Dosage: UNK, BID
     Route: 065
  5. HUMALOG [Suspect]
     Indication: TYPE 2 DIABETES MELLITUS
     Dosage: UNK, UNKNOWN
     Route: 065

REACTIONS (9)
  - MENTAL DISORDER [None]
  - CONVULSION [None]
  - CARDIAC DISORDER [None]
  - BLOOD DISORDER [None]
  - MYOCARDIAL INFARCTION [None]
  - CATARACT OPERATION [None]
  - STENT MALFUNCTION [None]
  - THERAPEUTIC RESPONSE INCREASED [None]
  - BLOOD GLUCOSE DECREASED [None]
